FAERS Safety Report 5677382-6 (Version None)
Quarter: 2008Q1

REPORT INFORMATION
  Report Type: 
  Country: None (occurrence: None)
  Receive Date: 20080318
  Receipt Date: 20080306
  Transmission Date: 20080703
  Serious: Yes (Other)
  Sender: FDA-Public Use
  Company Number: GXKR2008GB02364

PATIENT
  Sex: Female

DRUGS (3)
  1. CLONIDINE HCL [Suspect]
     Indication: CHEST PAIN
     Dosage: 25 UG, BID, ORAL; 50 UG, BID,ORAL; 75 UG, BID ORAL; 25 UG, ORAL
     Route: 048
  2. ZOLPIDEM [Concomitant]
  3. ACETAMINOPHEN [Concomitant]

REACTIONS (6)
  - ANGINA UNSTABLE [None]
  - CONSTIPATION [None]
  - DRUG WITHDRAWAL SYNDROME [None]
  - DYSPNOEA [None]
  - HEADACHE [None]
  - PAIN IN EXTREMITY [None]
